FAERS Safety Report 9996415 (Version 2)
Quarter: 2014Q2

REPORT INFORMATION
  Report Type: Spontaneous
  Country: US (occurrence: US)
  Receive Date: 20140311
  Receipt Date: 20140416
  Transmission Date: 20141212
  Serious: Yes (Hospitalization)
  Sender: FDA-Public Use
  Company Number: US-BAYER-2014-035185

PATIENT
  Age: 30 Year
  Sex: Female
  Weight: 78.91 kg

DRUGS (7)
  1. YAZ [Suspect]
  2. YASMIN [Suspect]
     Indication: CONTRACEPTION
  3. ZITHROMAX [Concomitant]
     Dosage: 250 MG, UNK
  4. ALBUTEROL [Concomitant]
     Dosage: 90 ?G, INHALER
  5. METRONIDAZOLE [Concomitant]
     Dosage: 250 MG, UNK
  6. OXYCODONE/APAP [Concomitant]
     Dosage: 5/325
  7. CEPHALEXIN [Concomitant]
     Dosage: 500 MG, UNK

REACTIONS (2)
  - Deep vein thrombosis [Recovered/Resolved]
  - Cholecystitis chronic [None]
